FAERS Safety Report 18166260 (Version 1)
Quarter: 2020Q3

REPORT INFORMATION
  Report Type: Spontaneous
  Country: DE (occurrence: DE)
  Receive Date: 20200819
  Receipt Date: 20200819
  Transmission Date: 20201103
  Serious: Yes (Hospitalization, Other)
  Sender: FDA-Public Use
  Company Number: DE-TEVA-2020-DE-1815641

PATIENT
  Age: 80 Year
  Sex: Male
  Weight: 74 kg

DRUGS (15)
  1. SPIOLTO RESPIMAT [Concomitant]
     Active Substance: OLODATEROL HYDROCHLORIDE\TIOTROPIUM BROMIDE MONOHYDRATE
     Dosage: 2 DOSAGE FORMS DAILY; 2.5 | 2.5 MCG, 2?0?0?0, METERED DOSE AEROSOL
     Route: 055
  2. FORMODUAL 100/6 MIKROGRAMM [Concomitant]
     Dosage: 100 | 6 UG, REQUIREMENT, METERED DOSE INHALER
     Route: 055
  3. TAMSULOSIN [Concomitant]
     Active Substance: TAMSULOSIN
     Dosage: .4 MILLIGRAM DAILY;  0?0?1?0
     Route: 048
  4. INSULIN ASPART [Concomitant]
     Active Substance: INSULIN ASPART
     Dosage: 300 U / 3ML, 6?2?4?0, PRE?FILLED SYRINGES
     Route: 058
  5. PANTOPRAZOL [Concomitant]
     Active Substance: PANTOPRAZOLE SODIUM
     Dosage: 40 MILLIGRAM DAILY;  1?0?0?0
     Route: 048
  6. TORASEMID [Suspect]
     Active Substance: TORSEMIDE
     Dosage: 1?0?0.5?0, UNIT DOSE: 30MG
     Route: 048
  7. GABAPENTIN. [Concomitant]
     Active Substance: GABAPENTIN
     Dosage: 600 MILLIGRAM DAILY; 1?0?1?0,
     Route: 048
  8. KALIUMCITRAT [Concomitant]
     Active Substance: POTASSIUM CITRATE
     Dosage: 1 DOSAGE FORMS DAILY; 2157.3 MG, 1?0?0?0, SACHET
     Route: 048
  9. ZOPICLON [Concomitant]
     Active Substance: ZOPICLONE
     Dosage: 7.5 MILLIGRAM DAILY;  0?0?1?0
     Route: 048
  10. METAMIZOL [Suspect]
     Active Substance: METAMIZOLE SODIUM
     Dosage: 2000 MILLIGRAM DAILY; 1?1?1?1
     Route: 048
  11. ENTRESTO [Suspect]
     Active Substance: SACUBITRIL\VALSARTAN
     Dosage: 2 DOSAGE FORMS DAILY; 24.3|25.7 MG, 1?0?1?0
     Route: 048
  12. APIXABAN [Concomitant]
     Active Substance: APIXABAN
     Dosage: 5 MILLIGRAM DAILY;  1?0?1?0
     Route: 048
  13. ROSUVASTATIN. [Concomitant]
     Active Substance: ROSUVASTATIN
     Dosage: 20 MILLIGRAM DAILY; 0?0?1?0
     Route: 048
  14. INSULIN GLARGIN [Concomitant]
     Active Substance: INSULIN GLARGINE
     Dosage: 450 U / 1.5ML, 0?0?16?0, PRE?FILLED SYRINGE
     Route: 058
  15. METOPROLOL. [Concomitant]
     Active Substance: METOPROLOL
     Dosage: 95 MG, 1?0?0.5?0, UNIT DOSE: 1.5 DF
     Route: 048

REACTIONS (7)
  - Localised infection [Unknown]
  - Pyrexia [Unknown]
  - Dyspnoea [Unknown]
  - Oedema peripheral [Unknown]
  - Cough [Unknown]
  - Renal impairment [Unknown]
  - Productive cough [Unknown]
